FAERS Safety Report 26142940 (Version 1)
Quarter: 2025Q4

REPORT INFORMATION
  Report Type: Spontaneous
  Country: IN (occurrence: IN)
  Receive Date: 20251211
  Receipt Date: 20251211
  Transmission Date: 20260117
  Serious: Yes (Other)
  Sender: BAUSCH AND LOMB
  Company Number: IN-BAUSCH-BH-2025-019956

PATIENT
  Age: 32 Year
  Sex: Female

DRUGS (3)
  1. IMIQUIMOD [Suspect]
     Active Substance: IMIQUIMOD
     Indication: Vaginal dysplasia
     Route: 061
  2. IMIQUIMOD [Suspect]
     Active Substance: IMIQUIMOD
     Indication: Papilloma viral infection
  3. IMIQUIMOD [Suspect]
     Active Substance: IMIQUIMOD
     Indication: Cervical dysplasia

REACTIONS (3)
  - Tuberculosis [Unknown]
  - Lymphadenopathy [Recovered/Resolved]
  - Therapy partial responder [Unknown]
